FAERS Safety Report 11329548 (Version 1)
Quarter: 2015Q3

REPORT INFORMATION
  Report Type: Spontaneous
  Country: GB (occurrence: None)
  Receive Date: 20150730
  Receipt Date: 20150730
  Transmission Date: 20151125
  Serious: Yes (Hospitalization, Other)
  Sender: FDA-Public Use
  Company Number: CC400264702

PATIENT
  Age: 85 Year
  Sex: Male

DRUGS (25)
  1. GENTAMICIN. [Suspect]
     Active Substance: GENTAMICIN
     Indication: HIP FRACTURE
     Route: 042
     Dates: start: 20150613
  2. DOXAZOSIN [Concomitant]
     Active Substance: DOXAZOSIN\DOXAZOSIN MESYLATE
  3. ERGOCALCIFEROL. [Concomitant]
     Active Substance: ERGOCALCIFEROL
  4. FUROSEMIDE. [Concomitant]
     Active Substance: FUROSEMIDE
  5. QUINIDINE SULPHATE [Concomitant]
  6. TINZAPARIN [Concomitant]
     Active Substance: TINZAPARIN
  7. DOXYCYCLINE. [Concomitant]
     Active Substance: DOXYCYCLINE
  8. OMEPRAZOLE. [Concomitant]
     Active Substance: OMEPRAZOLE
  9. SERETIDE (FLUTICASONE  + SALMETEROL) [Concomitant]
  10. CYCLIZINE [Concomitant]
     Active Substance: CYCLIZINE
  11. TIOTROPIUM [Concomitant]
     Active Substance: TIOTROPIUM
  12. METRONIDAZOLE. [Concomitant]
     Active Substance: METRONIDAZOLE
  13. SALBUTAMOL [Concomitant]
     Active Substance: ALBUTEROL
  14. TEICOPLANIN [Concomitant]
     Active Substance: TEICOPLANIN
  15. DARBEPOETIN ALFA [Concomitant]
     Active Substance: DARBEPOETIN ALFA
  16. ONDANSETRON [Concomitant]
     Active Substance: ONDANSETRON
  17. BISOPROLOL [Concomitant]
     Active Substance: BISOPROLOL
  18. LANSOPRAZOLE. [Concomitant]
     Active Substance: LANSOPRAZOLE
  19. MORPHINE [Concomitant]
     Active Substance: MORPHINE
  20. PARACETAMOL (ACETAMINOPHEN) [Concomitant]
     Active Substance: ACETAMINOPHEN
  21. TAMULOCIN [Concomitant]
  22. SIMVASTATIN. [Concomitant]
     Active Substance: SIMVASTATIN
  23. AMLODIPINE [Concomitant]
     Active Substance: AMLODIPINE BESYLATE
  24. CLOPIDOGREL [Concomitant]
     Active Substance: CLOPIDOGREL BISULFATE
  25. RAMIPRIL. [Concomitant]
     Active Substance: RAMIPRIL

REACTIONS (1)
  - Clostridium difficile infection [None]
